FAERS Safety Report 13189590 (Version 1)
Quarter: 2017Q1

REPORT INFORMATION
  Report Type: Spontaneous
  Country: US (occurrence: US)
  Receive Date: 20170206
  Receipt Date: 20170206
  Transmission Date: 20170428
  Serious: No
  Sender: FDA-Public Use
  Company Number: US-DSJP-DSU-2016-109350

PATIENT
  Sex: Female
  Weight: 75.74 kg

DRUGS (4)
  1. WELLBUTRIN [Suspect]
     Active Substance: BUPROPION HYDROCHLORIDE
     Indication: DEPRESSION
     Dosage: UNK
  2. LAMICTAL [Suspect]
     Active Substance: LAMOTRIGINE
     Indication: DEPRESSION
     Dosage: UNK
  3. PERCOCET                           /00446701/ [Concomitant]
     Active Substance: ACETAMINOPHEN\OXYCODONE HYDROCHLORIDE\OXYCODONE TEREPHTHALATE
     Indication: PAIN
     Dosage: UNK, UPTO 4 TIMES A DAY PRN
     Dates: start: 2007
  4. EVOXAC AG [Suspect]
     Active Substance: CEVIMELINE HYDROCHLORIDE
     Indication: DRY MOUTH
     Dosage: 30 MG, TID
     Route: 048
     Dates: start: 2015, end: 2016

REACTIONS (2)
  - Off label use [Recovered/Resolved]
  - Dental caries [Recovered/Resolved]

NARRATIVE: CASE EVENT DATE: 2015
